FAERS Safety Report 6670882-1 (Version None)
Quarter: 2010Q2

REPORT INFORMATION
  Report Type: 
  Country: None (occurrence: None)
  Receive Date: 20100406
  Receipt Date: 20100406
  Transmission Date: 20101027
  Serious: Yes (Hospitalization)
  Sender: FDA-Public Use
  Company Number: None

PATIENT
  Sex: Female
  Weight: 67 kg

DRUGS (5)
  1. CYTARABINE [Suspect]
     Dosage: 70 MG
  2. DAUNORUBICIN HCL [Suspect]
     Dosage: 45 MG
  3. PREDNISONE [Suspect]
     Dosage: 155 MG
  4. VINCRISTINE SULFATE [Suspect]
     Dosage: 2 MG
  5. METOCLOPRAMIDE HYDROCHLORIDE [Concomitant]

REACTIONS (32)
  - AGITATION [None]
  - ASPARTATE AMINOTRANSFERASE INCREASED [None]
  - BLOOD GLUCOSE INCREASED [None]
  - BLOOD PRESSURE DECREASED [None]
  - BRAIN INJURY [None]
  - CEREBRAL ISCHAEMIA [None]
  - CONVULSION [None]
  - DEPRESSED LEVEL OF CONSCIOUSNESS [None]
  - DIALYSIS [None]
  - DISORIENTATION [None]
  - ELECTROLYTE IMBALANCE [None]
  - EPISTAXIS [None]
  - GAIT DISTURBANCE [None]
  - HAEMORRHAGE [None]
  - HEART RATE INCREASED [None]
  - HYPERKALAEMIA [None]
  - HYPERPHOSPHATAEMIA [None]
  - HYPOTENSION [None]
  - INFECTION [None]
  - INJECTION SITE HAEMORRHAGE [None]
  - INTERNATIONAL NORMALISED RATIO INCREASED [None]
  - LACTIC ACIDOSIS [None]
  - MENTAL STATUS CHANGES [None]
  - MOUTH HAEMORRHAGE [None]
  - PULSE ABSENT [None]
  - RENAL FAILURE ACUTE [None]
  - SEPSIS [None]
  - SHOCK [None]
  - TUMOUR LYSIS SYNDROME [None]
  - URINARY INCONTINENCE [None]
  - VENTRICULAR TACHYCARDIA [None]
  - VOMITING [None]
